FAERS Safety Report 8230264-8 (Version None)
Quarter: 2012Q1

REPORT INFORMATION
  Report Type: 
  Country: None (occurrence: None)
  Receive Date: 20120321
  Receipt Date: 20120321
  Transmission Date: 20120608
  Serious: Yes (Life-Threatening, Other)
  Sender: FDA-Public Use
  Company Number: None

PATIENT
  Age: 59 Year
  Sex: Male
  Weight: 86.637 kg

DRUGS (1)
  1. TERBINAFINE HCL [Suspect]
     Indication: LOCALISED INFECTION
     Dosage: 1 DAILY
     Dates: start: 20120111, end: 20120314

REACTIONS (1)
  - AGEUSIA [None]
